FAERS Safety Report 14150255 (Version 5)
Quarter: 2019Q2

REPORT INFORMATION
  Report Type: Spontaneous
  Country: US (occurrence: US)
  Receive Date: 20171101
  Receipt Date: 20190412
  Transmission Date: 20190711
  Serious: Yes (Life-Threatening, Hospitalization, Disabling, Other)
  Sender: FDA-Public Use
  Company Number: US-PFIZER INC-2017432627

PATIENT
  Age: 70 Year
  Sex: Female
  Weight: 95 kg

DRUGS (11)
  1. IBRANCE [Suspect]
     Active Substance: PALBOCICLIB
     Dosage: 75 MG, CYCLIC [ONCE DAILY BY MOUTH FOR 21 DAYS A MONTH]
     Route: 048
     Dates: end: 20180622
  2. LETROZOLE. [Concomitant]
     Active Substance: LETROZOLE
     Indication: BREAST CANCER METASTATIC
     Dosage: 2.5 MG, 1X/DAY
     Route: 048
     Dates: start: 201612
  3. IBRANCE [Suspect]
     Active Substance: PALBOCICLIB
     Dosage: 100 MG, CYCLIC (DAILY 21 DAYS ON AND 7 DAYS OFF)
     Route: 048
     Dates: start: 20170201, end: 20170913
  4. VITAMIN D2 [Concomitant]
     Active Substance: ERGOCALCIFEROL
     Indication: BONE DISORDER
     Dosage: 400 IU, DAILY
  5. NYSTATIN POWDER [Concomitant]
     Active Substance: NYSTATIN
     Indication: FUNGAL SKIN INFECTION
     Dosage: APPLIED TOPICALLY FOUR TIMES DAILY
     Route: 061
  6. IBRANCE [Suspect]
     Active Substance: PALBOCICLIB
     Indication: OESTROGEN RECEPTOR POSITIVE BREAST CANCER
     Dosage: 125 MG, UNK
     Route: 048
  7. IBRANCE [Suspect]
     Active Substance: PALBOCICLIB
     Dosage: 75 MG, CYCLIC [ONCE DAILY BY MOUTH FOR 21 DAYS A MONTH]
     Route: 048
  8. IBRANCE [Suspect]
     Active Substance: PALBOCICLIB
     Dosage: 75 MG, CYCLIC (DAILY FOR 21 DOSES.)
     Route: 048
     Dates: start: 20171003
  9. LETROZOLE. [Concomitant]
     Active Substance: LETROZOLE
     Dosage: 1 DF, 1X/DAY
     Route: 048
     Dates: start: 201701
  10. MECLIZINE [Concomitant]
     Active Substance: MECLIZINE HYDROCHLORIDE
     Indication: DIZZINESS
     Dosage: 25 MG, THREE TIMES DAILY AS NEEDED
  11. FLONASE [Concomitant]
     Active Substance: FLUTICASONE PROPIONATE
     Indication: HYPERSENSITIVITY
     Dosage: 1 SPRAY NASALLY DAILY
     Route: 045

REACTIONS (7)
  - Pericardial effusion [Recovered/Resolved]
  - Musculoskeletal discomfort [Not Recovered/Not Resolved]
  - Anxiety [Unknown]
  - Arthralgia [Not Recovered/Not Resolved]
  - Pneumonia [Recovered/Resolved]
  - Cardiac tamponade [Unknown]
  - Musculoskeletal pain [Not Recovered/Not Resolved]

NARRATIVE: CASE EVENT DATE: 201706
